FAERS Safety Report 12924725 (Version 1)
Quarter: 2016Q4

REPORT INFORMATION
  Report Type: Spontaneous
  Country: AR (occurrence: AR)
  Receive Date: 20161109
  Receipt Date: 20161109
  Transmission Date: 20170207
  Serious: Yes (Death)
  Sender: FDA-Public Use
  Company Number: AR-AMGEN-ARGSP2016155849

PATIENT
  Age: 74 Year
  Sex: Male

DRUGS (1)
  1. ENBREL [Suspect]
     Active Substance: ETANERCEPT
     Indication: PSORIATIC ARTHROPATHY
     Dosage: 50 MG, EVERY 10 DAYS
     Route: 065
     Dates: start: 20061212

REACTIONS (4)
  - Cough [Unknown]
  - Liver disorder [Fatal]
  - Dysphagia [Unknown]
  - Fluid retention [Unknown]

NARRATIVE: CASE EVENT DATE: 201610
